FAERS Safety Report 6389019-1 (Version None)
Quarter: 2009Q4

REPORT INFORMATION
  Report Type: 
  Country: None (occurrence: None)
  Receive Date: 20091001
  Receipt Date: 20090921
  Transmission Date: 20100525
  Serious: Yes (Other)
  Sender: FDA-Public Use
  Company Number: CERZ-1000937

PATIENT
  Age: 54 Year
  Sex: Female
  Weight: 61.3 kg

DRUGS (1)
  1. CEREZYME [Suspect]
     Indication: GAUCHER'S DISEASE
     Dosage: 1800 U, Q2W, INTRAVENOUS
     Route: 042
     Dates: start: 19921124

REACTIONS (1)
  - JAW FRACTURE [None]
